FAERS Safety Report 4915412-7 (Version None)
Quarter: 2006Q1

REPORT INFORMATION
  Report Type: 
  Country: None (occurrence: None)
  Receive Date: 20060217
  Receipt Date: 20050802
  Transmission Date: 20060701
  Serious: Yes (Death, Hospitalization)
  Sender: FDA-Public Use
  Company Number: US-MERCK-0508USA00949

PATIENT
  Age: 75 Year
  Sex: Male
  Weight: 93 kg

DRUGS (1)
  1. VIOXX [Suspect]
     Indication: ARTHRITIS
     Route: 048

REACTIONS (14)
  - ARTERIOSCLEROSIS [None]
  - ATRIAL HYPERTROPHY [None]
  - CEREBROVASCULAR ACCIDENT [None]
  - EMPHYSEMA [None]
  - GASTROOESOPHAGEAL REFLUX DISEASE [None]
  - HEPATIC CANCER METASTATIC [None]
  - LUNG CANCER METASTATIC [None]
  - LUNG NEOPLASM MALIGNANT [None]
  - MEMORY IMPAIRMENT [None]
  - METASTASES TO LIVER [None]
  - MITRAL VALVE INCOMPETENCE [None]
  - RENAL DISORDER [None]
  - TRICUSPID VALVE INCOMPETENCE [None]
  - URINARY TRACT DISORDER [None]
